FAERS Safety Report 10048515 (Version 3)
Quarter: 2014Q2

REPORT INFORMATION
  Report Type: Spontaneous
  Country: US (occurrence: US)
  Receive Date: 20140331
  Receipt Date: 20140506
  Transmission Date: 20141212
  Serious: No
  Sender: FDA-Public Use
  Company Number: US-TEVA-472234USA

PATIENT
  Age: 39 Year
  Sex: Female
  Weight: 58.11 kg

DRUGS (2)
  1. PARAGARD 380A [Suspect]
     Indication: CONTRACEPTION
     Route: 015
     Dates: start: 20140324, end: 20140324
  2. LO LOESTRIN [Concomitant]
     Indication: CONTRACEPTION
     Route: 048

REACTIONS (2)
  - Anxiety [Recovered/Resolved]
  - Pain [Recovered/Resolved]
